FAERS Safety Report 6108515-5 (Version None)
Quarter: 2009Q1

REPORT INFORMATION
  Report Type: 
  Country: None (occurrence: None)
  Receive Date: 20090309
  Receipt Date: 20090226
  Transmission Date: 20090719
  Serious: Yes (Other)
  Sender: FDA-Public Use
  Company Number: DE-B.I. PHARMACEUTICALS,INC./RIDGEFIELD-2009-DE-01912DE

PATIENT
  Sex: Male

DRUGS (2)
  1. SIFROL 0,18 MG [Suspect]
  2. LYRICA [Suspect]
     Indication: POLYNEUROPATHY
     Dosage: 300MG

REACTIONS (2)
  - DRUG INTERACTION [None]
  - LEUKOPENIA [None]
